FAERS Safety Report 18893524 (Version 1)
Quarter: 2021Q1

REPORT INFORMATION
  Report Type: Spontaneous
  Country: US (occurrence: US)
  Receive Date: 20210215
  Receipt Date: 20210215
  Transmission Date: 20210420
  Serious: Yes (Other)
  Sender: FDA-Public Use
  Company Number: US-PURDUE-USA-2020-0158461

PATIENT

DRUGS (1)
  1. OXYCONTIN [Suspect]
     Active Substance: OXYCODONE HYDROCHLORIDE
     Indication: PAIN

REACTIONS (7)
  - Erectile dysfunction [Unknown]
  - Migraine [Unknown]
  - Anger [Unknown]
  - Libido decreased [Unknown]
  - Depression [Unknown]
  - Mental disorder [Unknown]
  - Hallucination [Unknown]
